FAERS Safety Report 9769183 (Version 1)
Quarter: 2013Q4

REPORT INFORMATION
  Report Type: Report from Study
  Country: LB (occurrence: LB)
  Receive Date: 20131218
  Receipt Date: 20131218
  Transmission Date: 20140711
  Serious: Yes (Hospitalization, Disabling)
  Sender: FDA-Public Use
  Company Number: LB-SA-2013SA129164

PATIENT
  Sex: Female

DRUGS (9)
  1. LANTUS SOLOSTAR [Suspect]
     Indication: DIABETES MELLITUS
     Dosage: DOSE:40 UNIT(S)
     Route: 058
     Dates: start: 2011
  2. SOLOSTAR [Concomitant]
     Indication: DEVICE THERAPY
  3. ACTRAPID [Concomitant]
     Indication: DIABETES MELLITUS
     Route: 058
  4. ATORVASTATIN [Concomitant]
     Route: 048
  5. TEGRETOL [Concomitant]
     Route: 048
  6. VASTAREL [Concomitant]
     Route: 048
  7. PRAXILENE [Concomitant]
     Route: 048
  8. SINTROM [Concomitant]
     Route: 048
  9. CARVEDILOL [Concomitant]
     Route: 048

REACTIONS (1)
  - Toe amputation [Recovered/Resolved]
